FAERS Safety Report 7428013-6 (Version None)
Quarter: 2011Q2

REPORT INFORMATION
  Report Type: 
  Country: None (occurrence: None)
  Receive Date: 20110413
  Receipt Date: 20110401
  Transmission Date: 20111010
  Serious: Yes (Hospitalization)
  Sender: FDA-Public Use
  Company Number: 2011SP015231

PATIENT
  Age: 48 Year
  Sex: Male
  Weight: 92 kg

DRUGS (8)
  1. VIRAFERONPEG [Suspect]
     Indication: HEPATITIS C
     Dosage: 135 MCG; SC
     Route: 058
     Dates: start: 20110222
  2. REBETOL [Suspect]
     Indication: HEPATITIS C
     Dosage: 1200 MG;QD;PO
     Route: 048
     Dates: start: 20110222
  3. BUPRENORPHINE [Concomitant]
  4. AVLOCARDYL [Concomitant]
  5. GRANOCYTE 34 [Concomitant]
  6. LASIX [Concomitant]
  7. BOCEPREVIR [Suspect]
     Indication: HEPATITIS C
     Dosage: 800 MG;TID
     Dates: start: 20110321
  8. NEORECORMON [Concomitant]

REACTIONS (2)
  - HYPERTHERMIA [None]
  - GENERAL PHYSICAL HEALTH DETERIORATION [None]
